FAERS Safety Report 5072393-6 (Version None)
Quarter: 2006Q3

REPORT INFORMATION
  Report Type: 
  Country: None (occurrence: None)
  Receive Date: 20060710
  Receipt Date: 20050705
  Transmission Date: 20061208
  Serious: Yes (Other)
  Sender: FDA-Public Use
  Company Number: PROG00205002160

PATIENT
  Age: 25 Year
  Sex: Female
  Weight: 49 kg

DRUGS (2)
  1. PROMETRIUM [Suspect]
     Indication: PRENATAL CARE
     Dosage: SEE IMAGE
     Route: 048
     Dates: start: 20040101, end: 20041201
  2. PROMETRIUM [Suspect]
     Indication: PRENATAL CARE
     Dosage: SEE IMAGE
     Route: 048
     Dates: start: 20050301

REACTIONS (1)
  - ABORTION SPONTANEOUS [None]
